FAERS Safety Report 7207902-1 (Version None)
Quarter: 2010Q4

REPORT INFORMATION
  Report Type: 
  Country: None (occurrence: None)
  Receive Date: 20101221
  Receipt Date: 20101206
  Transmission Date: 20110411
  Serious: Yes (Life-Threatening, Hospitalization, Disabling)
  Sender: FDA-Public Use
  Company Number: AUR-APL-2010-03071

PATIENT
  Age: 69 Year
  Sex: Female

DRUGS (16)
  1. SIMVASTATIN [Suspect]
     Dosage: 40MG
     Dates: start: 20061201, end: 20101022
  2. AMIODARONE [Suspect]
     Dosage: 200MG-ORAL
     Route: 048
     Dates: start: 20090101, end: 20101022
  3. ACETYLSALICYLIC ACID [Concomitant]
  4. BALSALAZIDE DISODIUM [Concomitant]
  5. CITALOPRAM HYDROBROMIDE [Concomitant]
  6. CODEINE SULFATE [Concomitant]
  7. BUMETANIDE [Concomitant]
  8. FLOXACILLIN SODIUM [Concomitant]
  9. FRUSEMIDE [Concomitant]
  10. NEBIVOLOL [Concomitant]
  11. PARACETAMOL [Concomitant]
  12. PERINDORPIL [Concomitant]
  13. SIMVASTATIN [Concomitant]
  14. SPIRONOLACTONE [Concomitant]
  15. TRIMETHOPRIM [Concomitant]
  16. WARFARIN [Concomitant]

REACTIONS (4)
  - INTERNATIONAL NORMALISED RATIO INCREASED [None]
  - MOBILITY DECREASED [None]
  - RENAL IMPAIRMENT [None]
  - RHABDOMYOLYSIS [None]
